FAERS Safety Report 4524819-1 (Version None)
Quarter: 2004Q4

REPORT INFORMATION
  Report Type: 
  Country: None (occurrence: None)
  Receive Date: 20041209
  Receipt Date: 20041209
  Transmission Date: 20050328
  Serious: Yes (Other)
  Sender: FDA-Public Use
  Company Number: None

PATIENT
  Age: 65 Year
  Sex: Female

DRUGS (9)
  1. LEVOFLOXACIN [Suspect]
     Indication: URINARY TRACT INFECTION
     Dosage: 500MG INTRAVENOUS
     Route: 042
     Dates: start: 20040601, end: 20040601
  2. PHYTONADIONE [Suspect]
     Indication: INTERNATIONAL NORMALISED RATIO INCREASED
     Dosage: 10MG INTRAVENOUS
     Route: 042
     Dates: start: 20040601, end: 20040601
  3. ALBUTEROL [Concomitant]
  4. NIFEDIPINE [Concomitant]
  5. METOPROLOL [Concomitant]
  6. HYDRALAZINE [Concomitant]
  7. NEPHROCAPS [Concomitant]
  8. RABEPRAZOLE SODIUM [Concomitant]
  9. CALCIUM ACETATE [Concomitant]

REACTIONS (9)
  - BRADYCARDIA [None]
  - CARDIAC ARREST [None]
  - COMA [None]
  - CONFUSIONAL STATE [None]
  - ELECTROMECHANICAL DISSOCIATION [None]
  - FEELING ABNORMAL [None]
  - INCREASED UPPER AIRWAY SECRETION [None]
  - PRURITUS [None]
  - SUDDEN CARDIAC DEATH [None]
